FAERS Safety Report 14380234 (Version 17)
Quarter: 2018Q4

REPORT INFORMATION
  Report Type: Report from Study
  Country: DE (occurrence: DE)
  Receive Date: 20180112
  Receipt Date: 20181211
  Transmission Date: 20190204
  Serious: Yes (Other)
  Sender: FDA-Public Use
  Company Number: DE-PFIZER INC-2018010950

PATIENT
  Age: 71 Year
  Sex: Male
  Weight: 87 kg

DRUGS (33)
  1. FLUOROURACIL 5 FU [Suspect]
     Active Substance: FLUOROURACIL
     Dosage: 606 MG, 2X/WEEK
     Route: 041
     Dates: start: 20160627, end: 20160627
  2. FOLINIC ACID [Concomitant]
     Active Substance: LEUCOVORIN
     Dosage: 808 MG, EVERY 2 WEEKS
     Route: 042
     Dates: start: 20160222, end: 20160222
  3. FOLINIC ACID [Concomitant]
     Active Substance: LEUCOVORIN
     Dosage: 606 MG, EVERY 2 WEEKS
     Route: 042
     Dates: start: 20160627, end: 20160627
  4. IRINOTECAN HCL [Suspect]
     Active Substance: IRINOTECAN HYDROCHLORIDE
     Dosage: 272 MG, BIW
     Route: 042
     Dates: start: 20160330, end: 20160330
  5. IRINOTECAN HCL [Suspect]
     Active Substance: IRINOTECAN HYDROCHLORIDE
     Dosage: 270 MG, BIW
     Route: 042
     Dates: start: 20160425, end: 20160425
  6. IRINOTECAN HCL [Suspect]
     Active Substance: IRINOTECAN HYDROCHLORIDE
     Dosage: 272 MG, BIW
     Route: 042
     Dates: start: 20160613, end: 20160613
  7. IRINOTECAN HCL [Suspect]
     Active Substance: IRINOTECAN HYDROCHLORIDE
     Dosage: UNK
  8. FLUOROURACIL 5 FU [Suspect]
     Active Substance: FLUOROURACIL
     Dosage: 808 MG, 2X/WEEK
     Route: 041
     Dates: start: 20160222, end: 20160222
  9. FLUOROURACIL 5 FU [Suspect]
     Active Substance: FLUOROURACIL
     Dosage: 600 MG, 2X/WEEK
     Route: 041
     Dates: start: 20160425, end: 20160425
  10. FOLINIC ACID [Concomitant]
     Active Substance: LEUCOVORIN
     Dosage: 600 MG, EVERY 2 WEEKS
     Route: 042
     Dates: start: 20160425, end: 20160425
  11. OXALIPLATIN. [Concomitant]
     Active Substance: OXALIPLATIN
     Indication: COLORECTAL CANCER
     Dosage: 129 MG, BIW
     Route: 042
     Dates: start: 20160919, end: 20160919
  12. VALSARTAN. [Concomitant]
     Active Substance: VALSARTAN
     Indication: HYPERTENSION
     Dosage: 80 MG, EVERY 10 DAYS
     Route: 048
  13. IRINOTECAN HCL [Suspect]
     Active Substance: IRINOTECAN HYDROCHLORIDE
     Dosage: 363 MG, BIW
     Route: 042
     Dates: start: 20160222, end: 20160222
  14. FLUOROURACIL 5 FU [Suspect]
     Active Substance: FLUOROURACIL
     Indication: COLORECTAL CANCER
     Dosage: 2X/WEEK (DOSAGES BETWEEN 600 MG AND 808 MG)
     Route: 041
     Dates: start: 20160208, end: 20160208
  15. FLUOROURACIL 5 FU [Suspect]
     Active Substance: FLUOROURACIL
     Dosage: 606 MG, 2X/WEEK
     Route: 041
     Dates: start: 20160330, end: 20160330
  16. FLUOROURACIL 5 FU [Suspect]
     Active Substance: FLUOROURACIL
     Dosage: 600 MG, 2X/WEEK
     Route: 041
     Dates: start: 20160411, end: 20160411
  17. FLUOROURACIL 5 FU [Suspect]
     Active Substance: FLUOROURACIL
     Dosage: 612 MG, 2X/WEEK
     Route: 041
     Dates: start: 20160711, end: 20160711
  18. IRINOTECAN HCL [Suspect]
     Active Substance: IRINOTECAN HYDROCHLORIDE
     Dosage: 272 MG, BIW
     Route: 042
     Dates: start: 20160314, end: 20160314
  19. IRINOTECAN HCL [Suspect]
     Active Substance: IRINOTECAN HYDROCHLORIDE
     Dosage: 270 MG, BIW
     Route: 042
     Dates: start: 20160411, end: 20160411
  20. FOLINIC ACID [Concomitant]
     Active Substance: LEUCOVORIN
     Dosage: 606 MG, EVERY 2 WEEKS
     Route: 042
     Dates: start: 20160314, end: 20160314
  21. IRINOTECAN HCL [Suspect]
     Active Substance: IRINOTECAN HYDROCHLORIDE
     Indication: COLORECTAL CANCER
     Dosage: 272 MG, BIW
     Route: 042
     Dates: start: 20160208, end: 20160208
  22. IRINOTECAN HCL [Suspect]
     Active Substance: IRINOTECAN HYDROCHLORIDE
     Dosage: 272 MG, BIW
     Route: 042
     Dates: start: 20160627, end: 20160627
  23. AVASTIN [Suspect]
     Active Substance: BEVACIZUMAB
     Dosage: 420 MG, 2X/WEEK
     Route: 042
     Dates: start: 20160615, end: 20160615
  24. FOLINIC ACID [Concomitant]
     Active Substance: LEUCOVORIN
     Indication: COLORECTAL CANCER
     Dosage: 600 MG, EVERY 2 WEEKS
     Route: 042
     Dates: start: 20160208, end: 20160208
  25. FOLINIC ACID [Concomitant]
     Active Substance: LEUCOVORIN
     Dosage: 606 MG, EVERY 2 WEEKS
     Route: 042
     Dates: start: 20160330, end: 20160330
  26. FOLINIC ACID [Concomitant]
     Active Substance: LEUCOVORIN
     Dosage: 606 MG, EVERY 2 WEEKS
     Route: 042
     Dates: start: 20160613, end: 20160613
  27. IRINOTECAN HCL [Suspect]
     Active Substance: IRINOTECAN HYDROCHLORIDE
     Dosage: 275 MG, BIW
     Route: 042
     Dates: start: 20160711, end: 20160711
  28. FOLINIC ACID [Concomitant]
     Active Substance: LEUCOVORIN
     Dosage: 612 MG, EVERY 2 WEEKS
     Route: 042
     Dates: start: 20160711, end: 20160711
  29. FLUOROURACIL 5 FU [Suspect]
     Active Substance: FLUOROURACIL
     Dosage: 606 MG, 2X/WEEK
     Route: 041
     Dates: start: 20160314, end: 20160314
  30. FLUOROURACIL 5 FU [Suspect]
     Active Substance: FLUOROURACIL
     Dosage: 606 MG, 2X/WEEK
     Route: 041
     Dates: start: 20160430, end: 20160430
  31. FLUOROURACIL 5 FU [Suspect]
     Active Substance: FLUOROURACIL
     Dosage: 606 MG, 2X/WEEK
     Route: 041
     Dates: start: 20160613, end: 20160613
  32. AVASTIN [Suspect]
     Active Substance: BEVACIZUMAB
     Indication: COLORECTAL CANCER
     Dosage: 840 MG, WEEKLY
     Route: 042
     Dates: start: 20160224
  33. FOLINIC ACID [Concomitant]
     Active Substance: LEUCOVORIN
     Dosage: 600 MG, EVERY 2 WEEKS
     Route: 042
     Dates: start: 20160411, end: 20160411

REACTIONS (3)
  - Inappropriate schedule of product administration [Unknown]
  - Neutropenia [Recovered/Resolved]
  - Epistaxis [Recovered/Resolved]

NARRATIVE: CASE EVENT DATE: 20160307
